FAERS Safety Report 5955686-7 (Version None)
Quarter: 2008Q4

REPORT INFORMATION
  Report Type: 
  Country: None (occurrence: None)
  Receive Date: 20081117
  Receipt Date: 20071109
  Transmission Date: 20090506
  Serious: Yes (Death, Hospitalization, Other)
  Sender: FDA-Public Use
  Company Number: US-ASTRAZENECA-2006UW22251

PATIENT
  Age: 495 Month
  Sex: Male
  Weight: 133.4 kg

DRUGS (32)
  1. SEROQUEL [Suspect]
     Route: 048
     Dates: start: 20020101
  2. CLOZARIL [Concomitant]
  3. HALDOL [Concomitant]
  4. RISPERDAL [Concomitant]
  5. THORAZINE [Concomitant]
  6. ZYPREXA [Concomitant]
  7. VALIUM [Concomitant]
  8. VIOXX [Concomitant]
  9. DEPAKOTE [Concomitant]
  10. HUMULIN 70/30 [Concomitant]
  11. GLUCOTROL [Concomitant]
  12. GLUCOPHAGE [Concomitant]
  13. VASOTEC [Concomitant]
  14. WELLBUTRIN [Concomitant]
  15. LITHIUM [Concomitant]
  16. REMERON [Concomitant]
  17. VYTORIN [Concomitant]
  18. AVANDIA [Concomitant]
  19. PROZAC [Concomitant]
  20. UNIVASC [Concomitant]
  21. VICODIN [Concomitant]
  22. ATIVAN [Concomitant]
  23. FENOFIBRATE [Concomitant]
  24. PROMETHAZINE [Concomitant]
  25. GEODON [Concomitant]
  26. TYLENOL (CAPLET) [Concomitant]
  27. IBUPROFEN TABLETS [Concomitant]
  28. CLARITIN [Concomitant]
  29. CEPHALEXIN [Concomitant]
  30. MONOPRIL [Concomitant]
  31. EFFEXOR XR [Concomitant]
  32. PREVACID [Concomitant]

REACTIONS (8)
  - CHONDROMATOSIS [None]
  - DEATH [None]
  - DEPRESSION [None]
  - DIABETIC KETOACIDOSIS [None]
  - OVERDOSE [None]
  - PANCREATITIS ACUTE [None]
  - POSTOPERATIVE WOUND INFECTION [None]
  - WOUND DEHISCENCE [None]
